FAERS Safety Report 5786808-9 (Version None)
Quarter: 2008Q2

REPORT INFORMATION
  Report Type: 
  Country: None (occurrence: None)
  Receive Date: 20080618
  Receipt Date: 20080616
  Transmission Date: 20081010
  Serious: Yes (Life-Threatening)
  Sender: FDA-Public Use
  Company Number: 2008-179165-NL

PATIENT
  Age: 77 Year
  Sex: Female

DRUGS (4)
  1. MIRTAZAPINE [Suspect]
     Dosage: 15 MG/30 MG ORAL
     Route: 048
     Dates: start: 20070702, end: 20070708
  2. MIRTAZAPINE [Suspect]
     Dosage: 15 MG/30 MG ORAL
     Route: 048
     Dates: start: 20070709
  3. PANTOPRAZOLE SODIUM [Concomitant]
  4. AMLODIPINE [Concomitant]

REACTIONS (2)
  - DEEP VEIN THROMBOSIS [None]
  - PULMONARY EMBOLISM [None]
